FAERS Safety Report 8215500-6 (Version None)
Quarter: 2012Q1

REPORT INFORMATION
  Report Type: 
  Country: None (occurrence: None)
  Receive Date: 20120316
  Receipt Date: 20120301
  Transmission Date: 20120608
  Serious: Yes (Hospitalization)
  Sender: FDA-Public Use
  Company Number: JP-ROCHE-1030689

PATIENT
  Sex: Female
  Weight: 42 kg

DRUGS (9)
  1. LANSOPRAZOLE [Concomitant]
     Indication: GASTROOESOPHAGEAL REFLUX DISEASE
     Route: 048
     Dates: start: 20110630, end: 20111229
  2. NABOAL [Concomitant]
     Indication: RHEUMATOID ARTHRITIS
     Route: 048
     Dates: start: 20081119, end: 20100415
  3. FAMOTIDINE [Concomitant]
     Indication: GASTRITIS
     Route: 048
     Dates: start: 20081119, end: 20100415
  4. AZULFIDINE [Concomitant]
     Indication: RHEUMATOID ARTHRITIS
     Route: 048
     Dates: start: 20091126, end: 20110630
  5. ACTEMRA [Suspect]
     Indication: RHEUMATOID ARTHRITIS
     Dosage: 320-340MG
     Route: 041
     Dates: start: 20081119, end: 20100617
  6. ACTEMRA [Suspect]
     Route: 041
     Dates: start: 20110623, end: 20110922
  7. RHEUMATREX [Concomitant]
     Indication: RHEUMATOID ARTHRITIS
     Route: 048
     Dates: start: 20080813, end: 20081118
  8. RHEUMATREX [Concomitant]
     Route: 048
     Dates: start: 20081119, end: 20091001
  9. ACTEMRA [Suspect]
     Route: 041
     Dates: start: 20111229, end: 20111229

REACTIONS (2)
  - HYPERTENSION [None]
  - CELLULITIS [None]
